FAERS Safety Report 4697689-9 (Version None)
Quarter: 2005Q2

REPORT INFORMATION
  Report Type: 
  Country: None (occurrence: None)
  Receive Date: 20050622
  Receipt Date: 20050615
  Transmission Date: 20051028
  Serious: Yes (Disabling)
  Sender: FDA-Public Use
  Company Number: SUSI-2005-00483

PATIENT
  Age: 18 Year
  Sex: Female

DRUGS (1)
  1. ADDERALL 10 [Suspect]
     Indication: ATTENTION DEFICIT/HYPERACTIVITY DISORDER
     Dates: start: 19970101, end: 19990101

REACTIONS (2)
  - TIC [None]
  - WHEELCHAIR USER [None]
